FAERS Safety Report 16935276 (Version 2)
Quarter: 2019Q4

REPORT INFORMATION
  Report Type: Spontaneous
  Country: CN (occurrence: CN)
  Receive Date: 20191018
  Receipt Date: 20191025
  Transmission Date: 20200122
  Serious: Yes (Other)
  Sender: FDA-Public Use
  Company Number: CN-ASTRAZENECA-2019SF46717

PATIENT
  Sex: Female

DRUGS (4)
  1. FORXIGA [Suspect]
     Active Substance: DAPAGLIFLOZIN
     Indication: ALBUMINURIA
     Dosage: 5 MG (10 MG, HALF TABLET) BEFORE MEAL
     Route: 048
  2. FORXIGA [Suspect]
     Active Substance: DAPAGLIFLOZIN
     Indication: DIABETES MELLITUS
     Dosage: 5 MG (10 MG, HALF TABLET) BEFORE MEAL
     Route: 048
  3. THYROZOL [Concomitant]
     Active Substance: METHIMAZOLE
     Indication: HYPERTHYROIDISM
  4. INSULIN GLARGINE [Concomitant]
     Active Substance: INSULIN GLARGINE
     Indication: BLOOD GLUCOSE ABNORMAL
     Dosage: INJECTION BEFORE GOING TO BED EVERY NIGHT

REACTIONS (2)
  - Palpitations [Recovered/Resolved]
  - Blood pressure increased [Not Recovered/Not Resolved]
